FAERS Safety Report 5829085-2 (Version None)
Quarter: 2008Q3

REPORT INFORMATION
  Report Type: 
  Country: None (occurrence: None)
  Receive Date: 20080731
  Receipt Date: 20080722
  Transmission Date: 20090109
  Serious: Yes (Hospitalization)
  Sender: FDA-Public Use
  Company Number: GB-ASTRAZENECA-2008GB01390

PATIENT
  Age: 16 Year
  Sex: Male
  Weight: 65 kg

DRUGS (4)
  1. LIDOCAINE [Suspect]
     Indication: LOCAL ANAESTHESIA
     Dosage: 8ML
     Route: 058
     Dates: start: 20080625, end: 20080625
  2. FUROSEMIDE [Concomitant]
     Indication: DIURETIC THERAPY
     Dosage: 40MG
     Route: 048
     Dates: start: 20080601
  3. PARACETAMOL [Concomitant]
     Indication: PAIN
     Route: 048
     Dates: start: 20080601
  4. SPIRONOLACTONE [Concomitant]
     Indication: DIURETIC THERAPY
     Route: 048
     Dates: start: 20080601, end: 20080601

REACTIONS (3)
  - HYPOTONIA [None]
  - MUSCLE TWITCHING [None]
  - PALLOR [None]
